FAERS Safety Report 18556792 (Version 1)
Quarter: 2020Q4

REPORT INFORMATION
  Report Type: Spontaneous
  Country: DE (occurrence: DE)
  Receive Date: 20201128
  Receipt Date: 20201128
  Transmission Date: 20210114
  Serious: Yes (Other)
  Sender: FDA-Public Use
  Company Number: NVSC2020DE315523

PATIENT
  Age: 64 Year
  Sex: Male

DRUGS (7)
  1. CARBOPLATIN. [Suspect]
     Active Substance: CARBOPLATIN
     Dosage: UNK (80% OF DOSE 1)
     Route: 042
  2. PEMETREXED DISODIUM [Suspect]
     Active Substance: PEMETREXED DISODIUM
     Dosage: UNK (80%, MAINTENANCE THERAPY COMBINED WITH PEMBROLIZUMAB)
     Route: 042
     Dates: start: 202001
  3. PEMBROLIZUMAB. [Suspect]
     Active Substance: PEMBROLIZUMAB
     Indication: LUNG ADENOCARCINOMA STAGE IV
     Dosage: 200 MG, TID (200MG FIX DOSE, COMBINED 3-FOLD THERAPY)
     Route: 065
     Dates: start: 201908
  4. PEMBROLIZUMAB. [Suspect]
     Active Substance: PEMBROLIZUMAB
     Dosage: MAINTENANCE THERAPY COMBINED WITH PEMETREXED 80%
     Route: 065
     Dates: start: 202001
  5. PEMETREXED DISODIUM [Suspect]
     Active Substance: PEMETREXED DISODIUM
     Indication: LUNG ADENOCARCINOMA STAGE IV
     Dosage: 500 MG/M2, TIW (500MG/M2 DAY 1, REPEAT ON DAY 2)
     Route: 042
     Dates: start: 201908
  6. PEMETREXED DISODIUM [Suspect]
     Active Substance: PEMETREXED DISODIUM
     Dosage: UNK, TIW (80% OF DOSE 1)
     Route: 042
  7. CARBOPLATIN. [Suspect]
     Active Substance: CARBOPLATIN
     Indication: LUNG ADENOCARCINOMA STAGE IV
     Dosage: UNK UNK, TIW (AREA UNDER THE CURVE (AUC) 5 DAY1, REPEAT ON DAY 21)
     Route: 042
     Dates: start: 201908

REACTIONS (3)
  - Malignant neoplasm progression [Recovering/Resolving]
  - Fatigue [Unknown]
  - Mucosal inflammation [Unknown]

NARRATIVE: CASE EVENT DATE: 201910
